FAERS Safety Report 4706972-X (Version None)
Quarter: 2005Q3

REPORT INFORMATION
  Report Type: 
  Country: None (occurrence: None)
  Receive Date: 20050701
  Receipt Date: 20050620
  Transmission Date: 20060218
  Serious: Yes (Hospitalization)
  Sender: FDA-Public Use
  Company Number: 2005BH000355

PATIENT
  Age: 72 Year
  Sex: Female
  Weight: 70 kg

DRUGS (1)
  1. HEPARIN SODIUM [Suspect]
     Dosage: 4200 IU; IV
     Route: 042
     Dates: start: 20050618, end: 20050618

REACTIONS (1)
  - THROMBOSIS IN DEVICE [None]
